FAERS Safety Report 17884821 (Version 5)
Quarter: 2021Q3

REPORT INFORMATION
  Report Type: Other
  Country: US (occurrence: US)
  Receive Date: 20200611
  Receipt Date: 20210816
  Transmission Date: 20211014
  Serious: Yes (Other)
  Sender: FDA-Public Use
  Company Number: US-ROCHE-2303986

PATIENT
  Sex: Female
  Weight: 67.19 kg

DRUGS (6)
  1. ACTEMRA [Suspect]
     Active Substance: TOCILIZUMAB
  2. ACTEMRA [Suspect]
     Active Substance: TOCILIZUMAB
     Indication: BLINDNESS
     Dosage: ONGOING: YES
     Route: 058
  3. ACTEMRA [Suspect]
     Active Substance: TOCILIZUMAB
  4. ACTEMRA [Suspect]
     Active Substance: TOCILIZUMAB
  5. ACTEMRA [Suspect]
     Active Substance: TOCILIZUMAB
     Indication: GIANT CELL ARTERITIS
     Dosage: ONGOING: NO
     Route: 058
  6. ACTEMRA [Suspect]
     Active Substance: TOCILIZUMAB
     Indication: POLYMYALGIA RHEUMATICA
     Dosage: ONGOING: YES
     Route: 058

REACTIONS (6)
  - Vision blurred [Recovered/Resolved]
  - Somnolence [Unknown]
  - Eye disorder [Unknown]
  - Off label use [Unknown]
  - Confusional state [Unknown]
  - Vision blurred [Unknown]
